FAERS Safety Report 8350757-2 (Version None)
Quarter: 2012Q2

REPORT INFORMATION
  Report Type: 
  Country: None (occurrence: None)
  Receive Date: 20120510
  Receipt Date: 20120503
  Transmission Date: 20120825
  Serious: Yes (Hospitalization, Congenital Anomaly)
  Sender: FDA-Public Use
  Company Number: US-GLAXOSMITHKLINE-A0976967A

PATIENT
  Sex: Male
  Weight: 2.9 kg

DRUGS (3)
  1. MULTI-VITAMINS [Concomitant]
  2. PAXIL [Suspect]
     Indication: DEPRESSION
     Dosage: 20MG PER DAY
     Route: 064
     Dates: start: 20011005, end: 20020401
  3. VALTREX [Concomitant]

REACTIONS (2)
  - FOETAL EXPOSURE DURING PREGNANCY [None]
  - FALLOT'S TETRALOGY [None]
